FAERS Safety Report 6611766-4 (Version None)
Quarter: 2010Q1

REPORT INFORMATION
  Report Type: 
  Country: None (occurrence: None)
  Receive Date: 20100301
  Receipt Date: 20100301
  Transmission Date: 20100710
  Serious: No
  Sender: FDA-Public Use
  Company Number: None

PATIENT
  Age: 37 Year
  Sex: Male
  Weight: 124.7392 kg

DRUGS (1)
  1. EQUATE SLEEPING PILLS DO NOT KNOW UNKNOWN [Suspect]
     Indication: INSOMNIA
     Dosage: 2 PILLS PER DAY PO
     Route: 048
     Dates: start: 20100202, end: 20100212

REACTIONS (2)
  - DEAFNESS UNILATERAL [None]
  - SUDDEN HEARING LOSS [None]
